FAERS Safety Report 14773695 (Version 4)
Quarter: 2018Q2

REPORT INFORMATION
  Report Type: Report from Study
  Country: BR (occurrence: BR)
  Receive Date: 20180418
  Receipt Date: 20180604
  Transmission Date: 20180711
  Serious: Yes (Other)
  Sender: FDA-Public Use
  Company Number: BR-ROCHE-2106261

PATIENT
  Age: 66 Year
  Sex: Male
  Weight: 53 kg

DRUGS (2)
  1. ATEZOLIZUMAB. [Suspect]
     Active Substance: ATEZOLIZUMAB
     Indication: NON-SMALL CELL LUNG CANCER METASTATIC
     Dosage: ALSO RECEIVED ON 25/NOV/2018, 05/JAN/2018 26/JAN/2018, 16/FEB/2018, 09/MAR/2018
     Route: 042
     Dates: start: 20171124
  2. PARACETAMOL [Concomitant]
     Active Substance: ACETAMINOPHEN
     Indication: HEADACHE
     Route: 048
     Dates: start: 20180403

REACTIONS (11)
  - Muscular weakness [Recovering/Resolving]
  - Diarrhoea [Recovered/Resolved]
  - Headache [Recovered/Resolved]
  - Nausea [Recovered/Resolved]
  - Decreased appetite [Recovering/Resolving]
  - Dizziness [Recovered/Resolved]
  - Productive cough [Recovering/Resolving]
  - Abdominal pain upper [Recovering/Resolving]
  - Hypertrichosis [Recovering/Resolving]
  - Hair colour changes [Recovering/Resolving]
  - Vomiting [Recovered/Resolved]

NARRATIVE: CASE EVENT DATE: 20171125
